FAERS Safety Report 10735924 (Version 2)
Quarter: 2015Q2

REPORT INFORMATION
  Report Type: Spontaneous
  Country: DE (occurrence: None)
  Receive Date: 20150121
  Receipt Date: 20150423
  Transmission Date: 20150821
  Serious: Yes (Other)
  Sender: FDA-Public Use
  Company Number: FK201500165

PATIENT
  Sex: Female

DRUGS (1)
  1. CARBOPLATIN INJECTION 10MG/ML (CARBOPLATIN USP) (CARBOPLATIN USP) [Suspect]
     Active Substance: CARBOPLATIN
     Indication: OVARIAN CANCER
     Dates: start: 201404, end: 201410

REACTIONS (1)
  - Pulmonary fibrosis [None]
